FAERS Safety Report 24837690 (Version 1)
Quarter: 2025Q1

REPORT INFORMATION
  Report Type: Report from Study
  Country: CA (occurrence: CA)
  Receive Date: 20250113
  Receipt Date: 20250113
  Transmission Date: 20250408
  Serious: Yes (Hospitalization, Other)
  Sender: TAKEDA
  Company Number: CA-TAKEDA-2024TUS093159

PATIENT
  Age: 31 Year
  Sex: Female
  Weight: 96 kg

DRUGS (2)
  1. VEDOLIZUMAB [Suspect]
     Active Substance: VEDOLIZUMAB
     Indication: Colitis ulcerative
  2. BUDESONIDE [Concomitant]
     Active Substance: BUDESONIDE

REACTIONS (6)
  - Appendicitis [Unknown]
  - Influenza like illness [Unknown]
  - Epistaxis [Unknown]
  - Nasopharyngitis [Not Recovered/Not Resolved]
  - Nausea [Unknown]
  - Fatigue [Unknown]

NARRATIVE: CASE EVENT DATE: 20240917
